FAERS Safety Report 8157150-6 (Version None)
Quarter: 2012Q1

REPORT INFORMATION
  Report Type: 
  Country: None (occurrence: None)
  Receive Date: 20120222
  Receipt Date: 20110119
  Transmission Date: 20120608
  Serious: Yes (Other)
  Sender: FDA-Public Use
  Company Number: JP-ROCHE-1035788

PATIENT

DRUGS (6)
  1. FLUOROURACIL [Suspect]
     Dosage: OVER 46 HOURS
  2. FLUOROURACIL [Suspect]
     Indication: COLORECTAL CANCER METASTATIC
     Dosage: BOLUS FOR 5 MINUTES
  3. OXALIPLATIN [Suspect]
     Dosage: REINTRODUCTION PHASE
  4. AVASTIN [Suspect]
     Indication: COLORECTAL CANCER METASTATIC
  5. OXALIPLATIN [Suspect]
     Indication: COLORECTAL CANCER METASTATIC
     Dosage: INTRODUCTION PHASE
  6. LEUCOVORIN CALCIUM [Suspect]
     Indication: COLORECTAL CANCER METASTATIC

REACTIONS (18)
  - HYPOKALAEMIA [None]
  - NAUSEA [None]
  - ANAEMIA [None]
  - ILEUS [None]
  - ANAL ULCER [None]
  - HYPERBILIRUBINAEMIA [None]
  - NEUTROPENIA [None]
  - DECREASED APPETITE [None]
  - DIARRHOEA [None]
  - PYREXIA [None]
  - WEIGHT INCREASED [None]
  - HYPERAMMONAEMIA [None]
  - ANAPHYLACTIC REACTION [None]
  - LEUKOPENIA [None]
  - PERIPHERAL SENSORY NEUROPATHY [None]
  - THROMBOCYTOPENIA [None]
  - INTESTINAL PERFORATION [None]
  - HYPERTENSION [None]
